FAERS Safety Report 5678836-9 (Version None)
Quarter: 2008Q1

REPORT INFORMATION
  Report Type: 
  Country: None (occurrence: None)
  Receive Date: 20080324
  Receipt Date: 20080324
  Transmission Date: 20080703
  Serious: Yes (Hospitalization)
  Sender: FDA-Public Use
  Company Number: None

PATIENT
  Age: 42 Year
  Sex: Male
  Weight: 54.4 kg

DRUGS (2)
  1. HYDROMORPHONE HCL [Suspect]
     Indication: PAIN
     Dosage: 4MG PRN PO
     Route: 048
     Dates: start: 20080308, end: 20080310
  2. QUETIAPINE FUMARATE [Suspect]
     Indication: DEPRESSION
     Dosage: 12.5MG HS PO
     Route: 048
     Dates: start: 20071019

REACTIONS (1)
  - MENTAL STATUS CHANGES [None]
